FAERS Safety Report 25084866 (Version 1)
Quarter: 2025Q1

REPORT INFORMATION
  Report Type: Spontaneous
  Country: CH (occurrence: CH)
  Receive Date: 20250317
  Receipt Date: 20250317
  Transmission Date: 20250408
  Serious: Yes (Other)
  Sender: BIOCON
  Company Number: CH-BIOCON BIOLOGICS LIMITED-BBL2025001443

PATIENT

DRUGS (1)
  1. ADALIMUMAB [Suspect]
     Active Substance: ADALIMUMAB
     Indication: Hepatitis C
     Route: 065

REACTIONS (2)
  - Nodular vasculitis [Unknown]
  - Product use in unapproved indication [Unknown]
